FAERS Safety Report 8533657-4 (Version None)
Quarter: 2012Q3

REPORT INFORMATION
  Report Type: 
  Country: None (occurrence: None)
  Receive Date: 20120724
  Receipt Date: 20120717
  Transmission Date: 20120928
  Serious: No
  Sender: FDA-Public Use
  Company Number: US-PFIZER INC-2012134137

PATIENT
  Sex: Female
  Weight: 53.515 kg

DRUGS (1)
  1. VFEND [Suspect]
     Indication: PULMONARY MYCOSIS
     Dosage: 100 MG, 2X/DAY
     Dates: start: 20111101, end: 20120701

REACTIONS (3)
  - PAIN OF SKIN [None]
  - ALOPECIA [None]
  - PRURITUS [None]
